FAERS Safety Report 9251297 (Version 1)
Quarter: 2013Q2

REPORT INFORMATION
  Report Type: Spontaneous
  Country: PL (occurrence: PL)
  Receive Date: 20130424
  Receipt Date: 20130424
  Transmission Date: 20140414
  Serious: Yes (Life-Threatening, Hospitalization)
  Sender: FDA-Public Use
  Company Number: PL-PFIZER INC-2013126700

PATIENT
  Age: 59 Year
  Sex: Female
  Weight: 70 kg

DRUGS (4)
  1. CISPLATIN [Suspect]
     Indication: LUNG NEOPLASM MALIGNANT
     Dosage: 135.59 MG, UNK
     Route: 042
     Dates: start: 20130206
  2. CISPLATIN [Suspect]
     Indication: BRONCHIAL CARCINOMA
  3. VINORELBINE [Suspect]
     Indication: LUNG NEOPLASM MALIGNANT
     Dosage: 52.85 MG, UNK
     Route: 042
     Dates: start: 20130206, end: 20130206
  4. VINORELBINE [Suspect]
     Indication: BRONCHIAL CARCINOMA
     Dosage: 50.85MG, UNK
     Route: 042
     Dates: start: 20130213, end: 20130213

REACTIONS (1)
  - Febrile neutropenia [Recovering/Resolving]
